FAERS Safety Report 22155125 (Version 1)
Quarter: 2023Q1

REPORT INFORMATION
  Report Type: Spontaneous
  Country: US (occurrence: None)
  Receive Date: 20230329
  Receipt Date: 20230329
  Transmission Date: 20230417
  Serious: Yes (Other)
  Sender: FDA-Public Use
  Company Number: None

PATIENT
  Age: 40 Year
  Sex: Female
  Weight: 116.7 kg

DRUGS (1)
  1. EMEND (FOSAPREPITANT DIMEGLUMINE) [Suspect]
     Active Substance: FOSAPREPITANT DIMEGLUMINE
     Indication: Prophylaxis of nausea and vomiting
     Dosage: 150 MG ONCE PRIOR TO SURG INTRAVENOUS DRIP?
     Route: 041
     Dates: start: 20230328, end: 20230328

REACTIONS (7)
  - Flushing [None]
  - Flushing [None]
  - Chest discomfort [None]
  - Hyperhidrosis [None]
  - Tachycardia [None]
  - Tachypnoea [None]
  - Drug hypersensitivity [None]

NARRATIVE: CASE EVENT DATE: 20230328
